FAERS Safety Report 7727557-7 (Version None)
Quarter: 2011Q3

REPORT INFORMATION
  Report Type: 
  Country: None (occurrence: None)
  Receive Date: 20110902
  Receipt Date: 20110830
  Transmission Date: 20111222
  Serious: Yes (Other)
  Sender: FDA-Public Use
  Company Number: US-PFIZER INC-2011169445

PATIENT
  Age: 59 Year
  Sex: Female

DRUGS (2)
  1. LIOTHYRONINE SODIUM [Suspect]
     Indication: HYPOTHYROIDISM
     Dosage: 5 MCG
     Route: 048
     Dates: start: 20110510, end: 20110511
  2. PROPRANOLOL HCL [Suspect]
     Indication: BLOOD PRESSURE INCREASED
     Dosage: UNK

REACTIONS (5)
  - DELUSION [None]
  - ANXIETY [None]
  - CRYING [None]
  - AMNESIA [None]
  - ANGER [None]
